FAERS Safety Report 10753531 (Version 1)
Quarter: 2015Q1

REPORT INFORMATION
  Report Type: Spontaneous
  Country: IT (occurrence: None)
  Receive Date: 20150129
  Receipt Date: 20150129
  Transmission Date: 20150721
  Serious: Yes (Hospitalization)
  Sender: FDA-Public Use
  Company Number: 2015HINLIT0014

PATIENT
  Age: 7 Month
  Sex: Female
  Weight: 2.5 kg

DRUGS (3)
  1. HYDROCHOROTHIAZIDE/SPIRONOLACTONE (HYDROCHLOROTHIAZIDE/SPIRONOLACTONE) [Concomitant]
  2. FUROSEMIDE (FUROSEMIDE) [Concomitant]
     Active Substance: FUROSEMIDE
  3. SILDENAFIL (SILDENAFIL) UNKNOWN [Suspect]
     Active Substance: SILDENAFIL
     Indication: PULMONARY HYPERTENSION
     Dosage: 0.2 MG/KG, TID STARTED 4 WEEKS BEFORE

REACTIONS (3)
  - Pupillary reflex impaired [None]
  - Optic ischaemic neuropathy [None]
  - Visual impairment [None]
